FAERS Safety Report 14761845 (Version 1)
Quarter: 2018Q2

REPORT INFORMATION
  Report Type: Spontaneous
  Country: GB (occurrence: GB)
  Receive Date: 20180416
  Receipt Date: 20180416
  Transmission Date: 20180711
  Serious: Yes (Other)
  Sender: FDA-Public Use
  Company Number: GB-TEVA-2018-GB-881619

PATIENT
  Age: 82 Year
  Sex: Male
  Weight: 95 kg

DRUGS (19)
  1. NITROFURANTOIN. [Suspect]
     Active Substance: NITROFURANTOIN
     Indication: URINARY TRACT INFECTION
     Route: 065
     Dates: start: 20171221
  2. ISOTARD XL [Concomitant]
     Dosage: 1 DOSAGE FORMS DAILY; EACH MORNING.
     Route: 065
     Dates: start: 20170704
  3. KOLANTICON [Concomitant]
     Dosage: 30 ML DAILY;
     Route: 065
     Dates: start: 20170327
  4. FELODIPINE. [Concomitant]
     Active Substance: FELODIPINE
     Dosage: 1 DOSAGE FORMS DAILY;
     Route: 065
     Dates: start: 20170601, end: 20170927
  5. ATORVASTATIN [Concomitant]
     Active Substance: ATORVASTATIN
     Indication: HYPERCHOLESTEROLAEMIA
     Dosage: 1 DOSAGE FORMS DAILY; EACH NIGHT.
     Route: 065
     Dates: start: 20171123
  6. BISOPROLOL [Concomitant]
     Active Substance: BISOPROLOL
     Dosage: 1 DOSAGE FORMS DAILY; IN THE MORNING.
     Route: 065
     Dates: start: 20171030
  7. LANSOPRAZOLE. [Concomitant]
     Active Substance: LANSOPRAZOLE
     Dosage: 2 DOSAGE FORMS DAILY; BEFORE FOOD.
     Route: 065
     Dates: start: 20170918
  8. WARFARIN SODIUM. [Concomitant]
     Active Substance: WARFARIN SODIUM
     Indication: ANTICOAGULANT THERAPY
     Dosage: TAKE AS PRESCRIBED IN ANTICOAGULANT TREATMENT BOOK.
     Dates: start: 20170626
  9. AMLODIPINE [Concomitant]
     Active Substance: AMLODIPINE BESYLATE
     Indication: HYPERTENSION
     Dosage: 1 DOSAGE FORMS DAILY;
     Route: 065
     Dates: start: 20171123
  10. TAMSULOSIN HYDROCHLORIDE. [Concomitant]
     Active Substance: TAMSULOSIN HYDROCHLORIDE
     Dosage: 1 DOSAGE FORMS DAILY;
     Route: 065
     Dates: start: 20170808
  11. PERINDOPRIL TERT-BUTYLAMINE [Concomitant]
     Active Substance: PERINDOPRIL ERBUMINE
     Dosage: 1 DOSAGE FORMS DAILY;
     Route: 065
     Dates: start: 20170808
  12. BETNOVATE [Concomitant]
     Active Substance: BETAMETHASONE
     Dosage: 1 DOSAGE FORMS DAILY; THINLY AS DIRECTED.
     Route: 065
     Dates: start: 20160112
  13. FINASTERIDE. [Concomitant]
     Active Substance: FINASTERIDE
     Dosage: 1 DOSAGE FORMS DAILY;
     Route: 065
     Dates: start: 20170920
  14. FULTIUM-D3 [Concomitant]
     Active Substance: CHOLECALCIFEROL
     Dosage: 1 DOSAGE FORMS DAILY;
     Route: 065
     Dates: start: 20170313
  15. LACTULOSE. [Concomitant]
     Active Substance: LACTULOSE
     Dosage: 10 ML DAILY;
     Route: 065
     Dates: start: 20160112
  16. GLYCERYL TRINITRATE [Concomitant]
     Active Substance: NITROGLYCERIN
     Route: 060
     Dates: start: 20170220
  17. SIMVASTATIN. [Concomitant]
     Active Substance: SIMVASTATIN
     Dosage: 1 DOSAGE FORMS DAILY; AT NIGHT.
     Route: 065
     Dates: start: 20170626, end: 20171123
  18. DOXAZOSIN [Concomitant]
     Active Substance: DOXAZOSIN\DOXAZOSIN MESYLATE
     Dosage: 1 DOSAGE FORMS DAILY;
     Route: 065
     Dates: start: 20170403
  19. SOTALOL. [Concomitant]
     Active Substance: SOTALOL
     Dosage: 2 DOSAGE FORMS DAILY;
     Route: 065
     Dates: start: 20170626

REACTIONS (2)
  - Rash erythematous [Recovering/Resolving]
  - Sleep disorder [Recovering/Resolving]

NARRATIVE: CASE EVENT DATE: 20171221
